FAERS Safety Report 22075816 (Version 1)
Quarter: 2023Q1

REPORT INFORMATION
  Report Type: Spontaneous
  Country: CA (occurrence: CA)
  Receive Date: 20230308
  Receipt Date: 20230308
  Transmission Date: 20230417
  Serious: Yes (Hospitalization, Other)
  Sender: FDA-Public Use
  Company Number: CA-HLS-202300512

PATIENT
  Sex: Male

DRUGS (4)
  1. ATROPINE [Concomitant]
     Active Substance: ATROPINE
     Dosage: EVERY 1 DAYS
     Route: 060
  2. CLOZAPINE [Suspect]
     Active Substance: CLOZAPINE
     Indication: Product used for unknown indication
     Dosage: EVERY 1 DAYS?AMOUNT: 400 MILLIGRAM?TABLETS DOSAGE FORM
     Route: 065
  3. INVEGA [Suspect]
     Active Substance: PALIPERIDONE
     Indication: Product used for unknown indication
     Dosage: 1 EVERY 3 MONTHS?AMOUNT: 350 MILLIGRAM?SUSPENSION (EXTENDED-RELEASE) DOSAGE FORM
     Route: 030
  4. OLANZAPINE [Concomitant]
     Active Substance: OLANZAPINE
     Dosage: AS REQUIRED?AMOUNT: 5 MILLIGRAM?NOT SPECIFIED DOSAGE FORM
     Route: 065

REACTIONS (2)
  - Condition aggravated [Recovered/Resolved]
  - Rhabdomyolysis [Recovered/Resolved]
